FAERS Safety Report 5937801-4 (Version None)
Quarter: 2008Q4

REPORT INFORMATION
  Report Type: 
  Country: None (occurrence: None)
  Receive Date: 20081031
  Receipt Date: 20081024
  Transmission Date: 20090506
  Serious: Yes (Other)
  Sender: FDA-Public Use
  Company Number: GB-ABBOTT-08P-167-0484069-00

PATIENT

DRUGS (4)
  1. RITONAVIR SOFT GELATIN CAPSULES [Suspect]
     Indication: DRUG USE FOR UNKNOWN INDICATION
  2. EFAVIRENZ [Suspect]
     Indication: DRUG USE FOR UNKNOWN INDICATION
  3. ATAZANAVIR SULFATE [Suspect]
     Indication: DRUG USE FOR UNKNOWN INDICATION
  4. TRUVADA [Suspect]
     Indication: DRUG USE FOR UNKNOWN INDICATION

REACTIONS (11)
  - ANGINA PECTORIS [None]
  - DEPRESSION [None]
  - FAECAL INCONTINENCE [None]
  - HEADACHE [None]
  - LETHARGY [None]
  - LIPODYSTROPHY ACQUIRED [None]
  - LUNG DISORDER [None]
  - MENTAL IMPAIRMENT [None]
  - MYALGIA [None]
  - PNEUMONIA [None]
  - SWEAT GLAND DISORDER [None]
